FAERS Safety Report 6665344-1 (Version None)
Quarter: 2010Q2

REPORT INFORMATION
  Report Type: 
  Country: None (occurrence: None)
  Receive Date: 20100402
  Receipt Date: 20100324
  Transmission Date: 20101027
  Serious: Yes (Life-Threatening)
  Sender: FDA-Public Use
  Company Number: JP-SANOFI-AVENTIS-2010SA016054

PATIENT
  Age: 58 Year
  Sex: Female

DRUGS (8)
  1. ELPLAT [Suspect]
     Indication: RECTAL CANCER METASTATIC
     Route: 041
     Dates: start: 20091216, end: 20091216
  2. ELPLAT [Suspect]
     Route: 041
     Dates: start: 20100216, end: 20100216
  3. AVASTIN [Suspect]
     Indication: RECTAL CANCER METASTATIC
     Route: 041
     Dates: start: 20091216, end: 20091216
  4. AVASTIN [Suspect]
     Route: 041
     Dates: start: 20100216, end: 20100216
  5. CALCIUM LEVOFOLINATE [Concomitant]
     Route: 041
     Dates: start: 20091216, end: 20091216
  6. CALCIUM LEVOFOLINATE [Concomitant]
     Route: 041
     Dates: start: 20100216, end: 20100216
  7. FLUOROURACIL [Concomitant]
     Route: 042
     Dates: start: 20091216, end: 20091216
  8. FLUOROURACIL [Concomitant]
     Route: 042
     Dates: start: 20100216, end: 20100216

REACTIONS (2)
  - CALCULUS URINARY [None]
  - PULMONARY OEDEMA [None]
